FAERS Safety Report 8140431-X (Version None)
Quarter: 2012Q1

REPORT INFORMATION
  Report Type: 
  Country: None (occurrence: None)
  Receive Date: 20120214
  Receipt Date: 20120214
  Transmission Date: 20120608
  Serious: Yes (Other)
  Sender: FDA-Public Use
  Company Number: None

PATIENT
  Sex: Female
  Weight: 81.2 kg

DRUGS (1)
  1. AVONEX [Suspect]
     Indication: MULTIPLE SCLEROSIS
     Dosage: 30MCG EVERY WEEK SQ
     Route: 058
     Dates: start: 20030101, end: 20111201

REACTIONS (2)
  - DYSKINESIA [None]
  - INFLUENZA LIKE ILLNESS [None]
